FAERS Safety Report 5599330-X (Version None)
Quarter: 2008Q1

REPORT INFORMATION
  Report Type: 
  Country: None (occurrence: None)
  Receive Date: 20080122
  Receipt Date: 20080110
  Transmission Date: 20080703
  Serious: Yes (Other)
  Sender: FDA-Public Use
  Company Number: US-PFIZER INC-2008003498

PATIENT
  Sex: Male

DRUGS (3)
  1. XALATAN [Suspect]
     Indication: INTRAOCULAR PRESSURE TEST
     Dates: start: 20060101, end: 20071001
  2. ALL OTHER THERAPEUTIC PRODUCTS [Concomitant]
  3. AZOPT [Concomitant]
     Route: 047

REACTIONS (2)
  - ABNORMAL SENSATION IN EYE [None]
  - CORNEAL DISORDER [None]
